FAERS Safety Report 22335624 (Version 1)
Quarter: 2023Q2

REPORT INFORMATION
  Report Type: Spontaneous
  Country: US (occurrence: None)
  Receive Date: 20230518
  Receipt Date: 20230518
  Transmission Date: 20230721
  Serious: Yes (Hospitalization, Other)
  Sender: FDA-Public Use
  Company Number: US-Unichem Pharmaceuticals (USA) Inc-UCM202305-000589

PATIENT
  Age: 62 Year
  Sex: Female

DRUGS (1)
  1. AMLODIPINE [Suspect]
     Active Substance: AMLODIPINE BESYLATE
     Indication: Product used for unknown indication

REACTIONS (8)
  - Loss of consciousness [Unknown]
  - Acute kidney injury [Unknown]
  - Oliguria [Unknown]
  - Metabolic acidosis [Unknown]
  - Respiratory acidosis [Unknown]
  - Hypotension [Unknown]
  - Bradycardia [Unknown]
  - Overdose [Unknown]
